FAERS Safety Report 6535350-6 (Version None)
Quarter: 2010Q1

REPORT INFORMATION
  Report Type: 
  Country: None (occurrence: None)
  Receive Date: 20100113
  Receipt Date: 20091230
  Transmission Date: 20100710
  Serious: Yes (Other)
  Sender: FDA-Public Use
  Company Number: FR-JNJFOC-20100102861

PATIENT
  Sex: Female

DRUGS (8)
  1. IXPRIM [Suspect]
     Indication: ANALGESIC THERAPY
     Route: 048
  2. EFFEXOR [Suspect]
     Indication: DRUG USE FOR UNKNOWN INDICATION
     Route: 048
  3. EFFEXOR [Suspect]
     Route: 048
  4. NOCTRAN 10 [Concomitant]
     Route: 065
  5. TROSPIUM [Concomitant]
     Route: 065
  6. DEBRIDAT [Concomitant]
     Route: 065
  7. ARIMIDEX [Concomitant]
     Route: 065
  8. TRAMADOL HYDROCHLORIDE [Concomitant]
     Route: 065

REACTIONS (1)
  - MANIA [None]
